FAERS Safety Report 4923298-X (Version None)
Quarter: 2006Q1

REPORT INFORMATION
  Report Type: 
  Country: None (occurrence: None)
  Receive Date: 20060223
  Receipt Date: 20060223
  Transmission Date: 20060701
  Serious: Yes (Other)
  Sender: FDA-Public Use
  Company Number: None

PATIENT
  Age: 42 Year
  Sex: Female
  Weight: 63.5036 kg

DRUGS (4)
  1. XANAX [Suspect]
     Indication: ANXIETY
     Dosage: .5  4 TIMES PER DAY PO
     Route: 048
     Dates: start: 19920601, end: 20060222
  2. XANAX [Suspect]
     Indication: PANIC ATTACK
     Dosage: .5  4 TIMES PER DAY PO
     Route: 048
     Dates: start: 19920601, end: 20060222
  3. PSEUDAFED  25 MG [Suspect]
     Indication: HEADACHE
     Dosage: 50 MG 3 TO 4 TIMES PER DAY PO
     Route: 048
     Dates: start: 19920601, end: 20060106
  4. PSEUDAFED  25 MG [Suspect]
     Indication: SINUS CONGESTION
     Dosage: 50 MG 3 TO 4 TIMES PER DAY PO
     Route: 048
     Dates: start: 19920601, end: 20060106

REACTIONS (16)
  - AMNESIA [None]
  - ANHEDONIA [None]
  - ANXIETY [None]
  - DEPRESSION [None]
  - DISTURBANCE IN ATTENTION [None]
  - DRUG EFFECT DECREASED [None]
  - DRUG INEFFECTIVE [None]
  - FEAR [None]
  - FEELING ABNORMAL [None]
  - HEART RATE INCREASED [None]
  - IMPAIRED WORK ABILITY [None]
  - INSOMNIA [None]
  - MENTAL IMPAIRMENT [None]
  - NASOPHARYNGITIS [None]
  - PANIC ATTACK [None]
  - REBOUND EFFECT [None]
